FAERS Safety Report 23161264 (Version 1)
Quarter: 2023Q4

REPORT INFORMATION
  Report Type: Report from Study
  Country: US (occurrence: US)
  Receive Date: 20231108
  Receipt Date: 20231108
  Transmission Date: 20240109
  Serious: Yes (Death)
  Sender: FDA-Public Use
  Company Number: US-MIRATI-MT2023PM05256

PATIENT
  Sex: Male
  Weight: 58.503 kg

DRUGS (1)
  1. KRAZATI [Suspect]
     Active Substance: ADAGRASIB
     Indication: Pancreatic carcinoma
     Dosage: 600 MG, BID
     Route: 048
     Dates: start: 20230811

REACTIONS (1)
  - Death [Fatal]
